FAERS Safety Report 6202628-5 (Version None)
Quarter: 2009Q2

REPORT INFORMATION
  Report Type: 
  Country: None (occurrence: None)
  Receive Date: 20090526
  Receipt Date: 20090518
  Transmission Date: 20091009
  Serious: Yes (Life-Threatening)
  Sender: FDA-Public Use
  Company Number: JP-SANOFI-SYNTHELABO-A01200905306

PATIENT
  Sex: Female

DRUGS (7)
  1. ASPIRIN [Concomitant]
     Dates: start: 20070911
  2. CALCIUM LEVOFOLINATE [Suspect]
     Route: 041
     Dates: start: 20090513, end: 20090513
  3. AVASTIN [Suspect]
     Route: 041
     Dates: start: 20090513, end: 20090513
  4. FLUOROURACIL [Suspect]
     Route: 042
     Dates: start: 20090501, end: 20090501
  5. SEROTONE [Concomitant]
     Dates: start: 20070919, end: 20070919
  6. DECADRON [Concomitant]
     Dates: start: 20070919, end: 20070919
  7. ELPLAT [Suspect]
     Indication: COLON CANCER METASTATIC
     Route: 042
     Dates: start: 20090513, end: 20090513

REACTIONS (1)
  - DISSEMINATED INTRAVASCULAR COAGULATION [None]
